FAERS Safety Report 26201446 (Version 2)
Quarter: 2025Q4

REPORT INFORMATION
  Report Type: Spontaneous
  Country: EU (occurrence: EU)
  Receive Date: 20251226
  Receipt Date: 20251228
  Transmission Date: 20260117
  Serious: Yes (Death, Hospitalization)
  Sender: MERCK SHARP & DOHME LLC
  Company Number: EU-009507513-2348373

PATIENT
  Age: 67 Year
  Sex: Male
  Weight: 52 kg

DRUGS (19)
  1. PEMBROLIZUMAB [Suspect]
     Active Substance: PEMBROLIZUMAB
     Indication: Non-small cell lung cancer
     Dosage: 200MG, INTRAVENOUS, CYCLICALLY
     Route: 042
     Dates: start: 20250414, end: 20250611
  2. PEMBROLIZUMAB [Suspect]
     Active Substance: PEMBROLIZUMAB
     Indication: Non-small cell lung cancer
     Dosage: 200MG, INTRAVENOUS, CYCLICALLY
     Route: 042
     Dates: start: 20250910, end: 20251027
  3. PEMBROLIZUMAB [Suspect]
     Active Substance: PEMBROLIZUMAB
     Indication: Non-small cell lung cancer
     Dosage: 200MG, INTRAVENOUS, CYCLICALLY
     Route: 042
     Dates: start: 20250630, end: 20250827
  4. PEMBROLIZUMAB [Suspect]
     Active Substance: PEMBROLIZUMAB
     Indication: Non-small cell lung cancer
     Dosage: 200MG, INTRAVENOUS, CYCLICALLY
     Route: 042
     Dates: start: 20251105, end: 20251118
  5. LORMETAZEPAM [Concomitant]
     Active Substance: LORMETAZEPAM
     Indication: Insomnia
     Dates: start: 20250319
  6. PREDNISONE [Concomitant]
     Active Substance: PREDNISONE
     Dates: start: 20250407
  7. PREGABALIN [Concomitant]
     Active Substance: PREGABALIN
     Indication: Pain
     Dates: start: 20250407
  8. MORPHINE [Concomitant]
     Active Substance: MORPHINE
     Dates: start: 20250415
  9. HYDROCHLOROTHIAZIDE [Concomitant]
     Active Substance: HYDROCHLOROTHIAZIDE
     Indication: Hypertension
     Dates: start: 20250521
  10. POTASSIUM CHLORIDE [Concomitant]
     Active Substance: POTASSIUM CHLORIDE
     Dates: start: 20250528
  11. IPRATROPIUM BROMIDE [Concomitant]
     Active Substance: IPRATROPIUM BROMIDE
     Indication: Asthma
     Dates: start: 20250523
  12. OMEPRAZOLE [Concomitant]
     Active Substance: OMEPRAZOLE
     Indication: Prophylaxis
     Dates: start: 20250407
  13. OXYCODONE [Concomitant]
     Active Substance: OXYCODONE
     Dates: start: 20250331
  14. NALOXONE [Concomitant]
     Active Substance: NALOXONE
     Dates: start: 20250331
  15. CODEINE [Concomitant]
     Active Substance: CODEINE
     Indication: Cough
     Dates: start: 20250307
  16. LOSARTAN [Concomitant]
     Active Substance: LOSARTAN
     Indication: Dyspnoea
     Dates: start: 20250307
  17. BUDESONIDE [Concomitant]
     Active Substance: BUDESONIDE
     Dates: start: 20250307
  18. FORMOTEROL [Concomitant]
     Active Substance: FORMOTEROL
     Dates: start: 20250307
  19. FENTANYL [Concomitant]
     Active Substance: FENTANYL
     Indication: Arthralgia
     Dates: start: 20250319

REACTIONS (2)
  - Immune-mediated lung disease [Recovered/Resolved]
  - Acute respiratory failure [Fatal]

NARRATIVE: CASE EVENT DATE: 20251022
